FAERS Safety Report 9267029 (Version 2)
Quarter: 2013Q2

REPORT INFORMATION
  Report Type: Spontaneous
  Country: US (occurrence: US)
  Receive Date: 20130502
  Receipt Date: 20130603
  Transmission Date: 20140414
  Serious: No
  Sender: FDA-Public Use
  Company Number: US-PFIZER INC-2013135368

PATIENT
  Age: 60 Year
  Sex: Female
  Weight: 84.81 kg

DRUGS (2)
  1. NICOTROL INHALER [Suspect]
     Indication: SMOKING CESSATION THERAPY
     Dosage: UNK
  2. NICOTROL INHALER [Suspect]
     Dosage: UNK

REACTIONS (3)
  - Product taste abnormal [Unknown]
  - Throat irritation [Unknown]
  - Oral discomfort [Unknown]
